FAERS Safety Report 18980808 (Version 1)
Quarter: 2021Q1

REPORT INFORMATION
  Report Type: Spontaneous
  Country: CN (occurrence: CN)
  Receive Date: 20210308
  Receipt Date: 20210308
  Transmission Date: 20210420
  Serious: Yes (Other)
  Sender: FDA-Public Use
  Company Number: CN-PFIZER INC-2021218473

PATIENT
  Age: 4 Year
  Sex: Male
  Weight: 19.2 kg

DRUGS (5)
  1. MEDROL [Suspect]
     Active Substance: METHYLPREDNISOLONE
     Indication: ANTIINFLAMMATORY THERAPY
     Dosage: 30 MG, 1X/DAY
     Route: 048
     Dates: start: 20210205, end: 20210210
  2. SOLU?MEDROL [Suspect]
     Active Substance: METHYLPREDNISOLONE SODIUM SUCCINATE
     Indication: ANTIINFLAMMATORY THERAPY
     Dosage: 30 MG, 1X/DAY
     Route: 042
     Dates: start: 20210211, end: 20210219
  3. PREDNISONE ACETATE [Suspect]
     Active Substance: PREDNISONE ACETATE
     Indication: ANTIINFLAMMATORY THERAPY
     Dosage: 32.5 MG, 1X/DAY
     Route: 048
     Dates: start: 20201208, end: 20210108
  4. PREDNISONE ACETATE [Suspect]
     Active Substance: PREDNISONE ACETATE
     Dosage: 32.5 MG, ALTERNATE DAY
     Route: 048
     Dates: start: 20210109, end: 20210129
  5. PREDNISONE ACETATE [Suspect]
     Active Substance: PREDNISONE ACETATE
     Dosage: 32.5 MG, 1X/DAY
     Route: 048
     Dates: start: 20210130, end: 20210205

REACTIONS (1)
  - Ocular hypertension [Unknown]

NARRATIVE: CASE EVENT DATE: 20210219
